FAERS Safety Report 9187245 (Version 1)
Quarter: 2013Q1

REPORT INFORMATION
  Report Type: Spontaneous
  Country: JP (occurrence: JP)
  Receive Date: 20130325
  Receipt Date: 20130325
  Transmission Date: 20140127
  Serious: Yes (Hospitalization)
  Sender: FDA-Public Use
  Company Number: JP-B.I. PHARMACEUTICALS,INC./RIDGEFIELD-2013-BI-06699GD

PATIENT
  Age: 75 Year
  Sex: Female

DRUGS (4)
  1. TELMISARTAN [Suspect]
     Dosage: 20 MG
     Route: 048
  2. ASPIRIN [Concomitant]
     Indication: DYSLIPIDAEMIA
     Dosage: 100 MG
     Route: 048
  3. ALLOPURINOL [Concomitant]
     Indication: HYPERURICAEMIA
     Dosage: 100 MG
     Route: 048
  4. ATORVASTATIN [Concomitant]
     Dosage: 10 MG
     Route: 048

REACTIONS (3)
  - Acute myocardial infarction [Unknown]
  - Coronary artery aneurysm [Unknown]
  - Coronary artery thrombosis [Unknown]
